FAERS Safety Report 7897770-7 (Version None)
Quarter: 2011Q4

REPORT INFORMATION
  Report Type: 
  Country: None (occurrence: None)
  Receive Date: 20111107
  Receipt Date: 20111101
  Transmission Date: 20120403
  Serious: Yes (Hospitalization)
  Sender: FDA-Public Use
  Company Number: GB-ROCHE-710358

PATIENT
  Sex: Male
  Weight: 96.1 kg

DRUGS (7)
  1. AVASTIN [Suspect]
     Indication: RENAL CELL CARCINOMA
     Dosage: FREQUENCY REPORTED AS FORTNIGHTLY
     Route: 042
     Dates: start: 20100401, end: 20100616
  2. VENTOLIN DS [Concomitant]
     Indication: DYSPNOEA
     Dosage: AS REQUIRED
     Route: 048
  3. ACETAMINOPHEN [Concomitant]
     Indication: HEADACHE
     Dosage: AS REQUIRED
     Route: 048
  4. AMLODIPINE [Concomitant]
     Indication: HYPERTENSION
     Route: 048
  5. RAMIPRIL [Concomitant]
     Indication: HYPERTENSION
     Route: 048
  6. CHLORPHENIRAMINE MALEATE [Concomitant]
     Indication: RASH
     Route: 048
  7. TEMSIROLIMUS [Suspect]
     Indication: RENAL CELL CARCINOMA
     Route: 065
     Dates: start: 20100401, end: 20100616

REACTIONS (1)
  - MUSCULAR WEAKNESS [None]
